FAERS Safety Report 4925204-0 (Version None)
Quarter: 2006Q1

REPORT INFORMATION
  Report Type: 
  Country: None (occurrence: None)
  Receive Date: 20060228
  Receipt Date: 20060126
  Transmission Date: 20060701
  Serious: No
  Sender: FDA-Public Use
  Company Number: US-GLAXOSMITHKLINE-A0591119A

PATIENT
  Sex: Male

DRUGS (13)
  1. AVODART [Suspect]
     Indication: BENIGN PROSTATIC HYPERPLASIA
     Route: 048
     Dates: start: 20060101
  2. LANTUS [Concomitant]
  3. ACTOS [Concomitant]
  4. METFORMIN [Concomitant]
  5. DIGOXIN [Concomitant]
  6. ALLOPURINOL [Concomitant]
  7. LISINOPRIL [Concomitant]
  8. VITAMIN E [Concomitant]
  9. COUMADIN [Concomitant]
  10. LIPITOR [Concomitant]
  11. TOPROL [Concomitant]
  12. TRAZODONE [Concomitant]
  13. ARICEPT [Concomitant]

REACTIONS (1)
  - BLOOD GLUCOSE INCREASED [None]
